FAERS Safety Report 7539625-3 (Version None)
Quarter: 2011Q2

REPORT INFORMATION
  Report Type: 
  Country: None (occurrence: None)
  Receive Date: 20110610
  Receipt Date: 20110601
  Transmission Date: 20111010
  Serious: Yes (Other)
  Sender: FDA-Public Use
  Company Number: FR-CEPHALON-2011002791

PATIENT
  Age: 13 Year
  Sex: Male

DRUGS (3)
  1. TRILEPTAL [Interacting]
     Route: 048
  2. ZARONTIN [Interacting]
  3. MODAFINIL [Suspect]
     Indication: HYPERSOMNIA
     Route: 048
     Dates: start: 20110501

REACTIONS (3)
  - CONVULSION [None]
  - DRUG INTERACTION [None]
  - DRUG PRESCRIBING ERROR [None]
